FAERS Safety Report 6473906-X (Version None)
Quarter: 2009Q4

REPORT INFORMATION
  Report Type: 
  Country: None (occurrence: None)
  Receive Date: 20091204
  Receipt Date: 20090831
  Transmission Date: 20100525
  Serious: No
  Sender: FDA-Public Use
  Company Number: A0802826A

PATIENT
  Age: 44 Year
  Sex: Male

DRUGS (6)
  1. LAMICTAL [Suspect]
     Indication: BIPOLAR DISORDER
     Dosage: 100MG UNKNOWN
     Route: 048
     Dates: start: 20090101
  2. LAMICTAL [Suspect]
  3. CYMBALTA [Concomitant]
     Dosage: 60MG TWICE PER DAY
     Route: 048
     Dates: start: 20090101
  4. VISTARIL [Concomitant]
     Dosage: 50MG THREE TIMES PER DAY
     Route: 048
  5. RESTORIL [Concomitant]
     Dosage: 30MG AT NIGHT
     Route: 048
     Dates: start: 20090101
  6. SEROQUEL [Concomitant]
     Dosage: 300MG AT NIGHT
     Route: 048

REACTIONS (3)
  - BLISTER [None]
  - DRUG ADMINISTRATION ERROR [None]
  - RASH ERYTHEMATOUS [None]
